FAERS Safety Report 11167112 (Version 1)
Quarter: 2015Q2

REPORT INFORMATION
  Report Type: Spontaneous
  Country: DE (occurrence: None)
  Receive Date: 20150603
  Receipt Date: 20150603
  Transmission Date: 20150821
  Serious: No
  Sender: FDA-Public Use
  Company Number: 2014DEPDE00605

PATIENT
  Sex: Female

DRUGS (1)
  1. DEPOCYT(E) (CYTARABINE) LIPOSOME INJECTABLE SUSPENSION, MG [Suspect]
     Active Substance: CYTARABINE
     Indication: METASTASES TO MENINGES
     Dosage: ADMINISTERED 5 TO 6 TIMES IN THE LAST 2 WEEKS
     Route: 037

REACTIONS (4)
  - Inappropriate schedule of drug administration [None]
  - Condition aggravated [None]
  - Headache [None]
  - Musculoskeletal stiffness [None]
